FAERS Safety Report 20757242 (Version 2)
Quarter: 2025Q2

REPORT INFORMATION
  Report Type: Report from Study
  Country: FR (occurrence: FR)
  Receive Date: 20220427
  Receipt Date: 20250513
  Transmission Date: 20250717
  Serious: Yes (Other)
  Sender: TAKEDA
  Company Number: FR-CELGENE-FRA-20200204953

PATIENT
  Age: 74 Year
  Sex: Male

DRUGS (16)
  1. BORTEZOMIB [Suspect]
     Active Substance: BORTEZOMIB
     Indication: Plasma cell myeloma
     Dosage: 1.3 MILLIGRAM/SQ. METER, 2/WEEK
     Dates: start: 20190416, end: 20190719
  2. BORTEZOMIB [Suspect]
     Active Substance: BORTEZOMIB
     Dates: start: 20191009, end: 20191009
  3. DEXAMETHASONE [Suspect]
     Active Substance: DEXAMETHASONE
     Indication: Plasma cell myeloma
     Dosage: 20 MILLIGRAM, 1/WEEK
     Dates: start: 20190101, end: 20190128
  4. DEXAMETHASONE [Suspect]
     Active Substance: DEXAMETHASONE
     Dosage: 40 MILLIGRAM, 1/WEEK
     Dates: start: 20190416
  5. DEXAMETHASONE [Suspect]
     Active Substance: DEXAMETHASONE
     Dosage: 20 MILLIGRAM, 1/WEEK
     Dates: start: 20191009, end: 20191105
  6. DEXAMETHASONE [Suspect]
     Active Substance: DEXAMETHASONE
     Dosage: 20 MILLIGRAM, 1/WEEK
     Dates: start: 20191106, end: 20191203
  7. DEXAMETHASONE [Suspect]
     Active Substance: DEXAMETHASONE
     Dosage: 20 MILLIGRAM, 1/WEEK
     Dates: start: 20191204, end: 20191231
  8. REVLIMID [Suspect]
     Active Substance: LENALIDOMIDE
     Indication: Plasma cell myeloma
     Dosage: 15 MILLIGRAM, QD
     Dates: start: 20190416
  9. REVLIMID [Suspect]
     Active Substance: LENALIDOMIDE
     Dosage: 15 MILLIGRAM, QD
     Dates: start: 20191009, end: 20191029
  10. REVLIMID [Suspect]
     Active Substance: LENALIDOMIDE
     Dates: start: 20191030, end: 20191105
  11. REVLIMID [Suspect]
     Active Substance: LENALIDOMIDE
     Dosage: 15 MILLIGRAM, QD
     Dates: start: 20191106, end: 20191126
  12. REVLIMID [Suspect]
     Active Substance: LENALIDOMIDE
     Dates: start: 20191127, end: 20191203
  13. REVLIMID [Suspect]
     Active Substance: LENALIDOMIDE
     Dosage: 15 MILLIGRAM, QD
     Dates: start: 20191204, end: 20191224
  14. REVLIMID [Suspect]
     Active Substance: LENALIDOMIDE
     Dates: start: 20191225, end: 20191231
  15. REVLIMID [Suspect]
     Active Substance: LENALIDOMIDE
     Dosage: 15 MILLIGRAM, QD
     Dates: start: 20200101, end: 20200121
  16. REVLIMID [Suspect]
     Active Substance: LENALIDOMIDE
     Dates: start: 20200122, end: 20200128

REACTIONS (2)
  - Basal cell carcinoma [Unknown]
  - Transitional cell carcinoma [Recovered/Resolved]

NARRATIVE: CASE EVENT DATE: 20191216
